FAERS Safety Report 8264249-2 (Version None)
Quarter: 2012Q2

REPORT INFORMATION
  Report Type: 
  Country: None (occurrence: None)
  Receive Date: 20120406
  Receipt Date: 20120328
  Transmission Date: 20120825
  Serious: Yes (Hospitalization)
  Sender: FDA-Public Use
  Company Number: FR-JNJFOC-20120400322

PATIENT
  Age: 29 Year
  Sex: Female

DRUGS (3)
  1. REMICADE [Suspect]
     Indication: CROHN'S DISEASE
     Route: 042
     Dates: start: 20120101
  2. REMICADE [Suspect]
     Route: 042
     Dates: start: 20050101
  3. REMICADE [Suspect]
     Route: 042
     Dates: start: 20120208

REACTIONS (5)
  - HOT FLUSH [None]
  - INFUSION RELATED REACTION [None]
  - NAUSEA [None]
  - MALAISE [None]
  - CHEST DISCOMFORT [None]
